FAERS Safety Report 19379062 (Version 2)
Quarter: 2021Q2

REPORT INFORMATION
  Report Type: Spontaneous
  Country: BR (occurrence: BR)
  Receive Date: 20210607
  Receipt Date: 20210625
  Transmission Date: 20210717
  Serious: Yes (Hospitalization)
  Sender: FDA-Public Use
  Company Number: BR-ASTRAZENECA-2021A488698

PATIENT
  Age: 2 Year
  Sex: Female

DRUGS (14)
  1. LOSEC [Suspect]
     Active Substance: OMEPRAZOLE
     Indication: GASTROOESOPHAGEAL REFLUX DISEASE
     Route: 048
  2. LOSEC [Suspect]
     Active Substance: OMEPRAZOLE
     Indication: GASTROOESOPHAGEAL REFLUX DISEASE
     Route: 048
  3. LOSEC [Suspect]
     Active Substance: OMEPRAZOLE
     Indication: IMPAIRED GASTRIC EMPTYING
     Route: 048
  4. ZYXEM [Concomitant]
     Active Substance: LEVOCETIRIZINE
  5. BRONSILAT [Concomitant]
  6. GARDENAL [Concomitant]
     Active Substance: PHENOBARBITAL
  7. CLENIL A [Concomitant]
     Active Substance: BECLOMETHASONE DIPROPIONATE
  8. KEPPRA [Concomitant]
     Active Substance: LEVETIRACETAM
  9. TRILEPTAL [Concomitant]
     Active Substance: OXCARBAZEPINE
  10. AEROLIN [Concomitant]
     Active Substance: ALBUTEROL
  11. ZIRVIT [Concomitant]
  12. LOSEC [Suspect]
     Active Substance: OMEPRAZOLE
     Indication: IMPAIRED GASTRIC EMPTYING
     Route: 048
  13. NITRAZEPAM [Concomitant]
     Active Substance: NITRAZEPAM
  14. DOMPERIDONE [Concomitant]
     Active Substance: DOMPERIDONE

REACTIONS (3)
  - Dysphagia [Unknown]
  - Off label use [Not Recovered/Not Resolved]
  - Pneumonia [Recovered/Resolved]

NARRATIVE: CASE EVENT DATE: 20210514
